FAERS Safety Report 10336171 (Version 2)
Quarter: 2014Q3

REPORT INFORMATION
  Report Type: Spontaneous
  Country: US (occurrence: US)
  Receive Date: 20140723
  Receipt Date: 20140723
  Transmission Date: 20150326
  Serious: No
  Sender: FDA-Public Use
  Company Number: US-BRISTOL-MYERS SQUIBB COMPANY-19876473

PATIENT
  Age: 87 Year
  Sex: Male
  Weight: 84.8 kg

DRUGS (8)
  1. DOCUSATE SODIUM. [Concomitant]
     Active Substance: DOCUSATE SODIUM
  2. METAMUCIL [Concomitant]
     Active Substance: PLANTAGO SEED
  3. METOPROLOL [Concomitant]
     Active Substance: METOPROLOL
     Dosage: EVERY MORNING,50MG EVERY EVENING
  4. GLIPIZIDE. [Concomitant]
     Active Substance: GLIPIZIDE
  5. ATORVASTATIN [Concomitant]
     Active Substance: ATORVASTATIN
     Dosage: EVERY EVENING
  6. COUMADIN [Suspect]
     Active Substance: WARFARIN SODIUM
     Indication: ATRIAL FIBRILLATION
     Dosage: 4 TO 6 MG BREAKOUT
  7. AMLODIPINE [Concomitant]
     Active Substance: AMLODIPINE BESYLATE
     Dosage: EVERY EVENING
  8. FLECAINIDE [Concomitant]
     Active Substance: FLECAINIDE

REACTIONS (7)
  - Weight decreased [Unknown]
  - Feeling jittery [Unknown]
  - Skin disorder [Unknown]
  - Drug ineffective [Unknown]
  - Swelling face [Unknown]
  - Eye swelling [Unknown]
  - Nervousness [Unknown]
